FAERS Safety Report 24683756 (Version 1)
Quarter: 2024Q4

REPORT INFORMATION
  Report Type: Spontaneous
  Country: JP (occurrence: JP)
  Receive Date: 20241202
  Receipt Date: 20241202
  Transmission Date: 20250114
  Serious: Yes (Hospitalization, Other)
  Sender: UCB
  Company Number: JP-UCBJ-CD202404111UCBPHAPROD

PATIENT
  Age: 8 Decade
  Sex: Female
  Weight: 52 kg

DRUGS (1)
  1. RYSTIGGO [Suspect]
     Active Substance: ROZANOLIXIZUMAB-NOLI
     Indication: Myasthenia gravis
     Dosage: 3 MILLILITER, WEEKLY (QW)
     Route: 058
     Dates: start: 20240423, end: 20241023

REACTIONS (5)
  - Myasthenia gravis [Recovered/Resolved]
  - Plasmapheresis [Recovered/Resolved]
  - Nasopharyngitis [Unknown]
  - Headache [Unknown]
  - Pyrexia [Unknown]

NARRATIVE: CASE EVENT DATE: 20240508
